FAERS Safety Report 10336081 (Version 2)
Quarter: 2014Q3

REPORT INFORMATION
  Report Type: Spontaneous
  Country: US (occurrence: US)
  Receive Date: 20140723
  Receipt Date: 20140723
  Transmission Date: 20150326
  Serious: No
  Sender: FDA-Public Use
  Company Number: US-BRISTOL-MYERS SQUIBB COMPANY-19715572

PATIENT
  Age: 60 Year
  Sex: Female
  Weight: 68.03 kg

DRUGS (1)
  1. COUMADIN [Suspect]
     Active Substance: WARFARIN SODIUM
     Indication: THROMBOSIS
     Dosage: 1 DF: 4 MG AND 2 MG, INTER FOR 6DAYS,RESTARTED WITH 2MG ?STARTED IN MAY OR JUN13?LAST DOSE:29OCT13
     Route: 048
     Dates: start: 2013

REACTIONS (13)
  - Sedation [Unknown]
  - Breast enlargement [Unknown]
  - Urine output decreased [Unknown]
  - Joint injury [Unknown]
  - Neuropathy peripheral [Unknown]
  - Dizziness [Unknown]
  - Diarrhoea [Unknown]
  - Gingival bleeding [Unknown]
  - Poor quality sleep [Unknown]
  - International normalised ratio increased [Unknown]
  - Muscle spasms [Unknown]
  - Fall [Unknown]
  - Chest discomfort [Unknown]
